FAERS Safety Report 7472218-5 (Version None)
Quarter: 2011Q3

REPORT INFORMATION
  Report Type: 
  Country: None (occurrence: None)
  Receive Date: 20110511
  Receipt Date: 20110502
  Transmission Date: 20111222
  Serious: Yes (Hospitalization)
  Sender: FDA-Public Use
  Company Number: FI-PURDUE-GBR-2011-0008131

PATIENT
  Sex: Male

DRUGS (14)
  1. PEGORION [Concomitant]
     Dosage: 12 G, BID
  2. TAMSUMIN [Concomitant]
     Dosage: 1 DF, DAILY
  3. PANADOL                            /00020001/ [Concomitant]
     Dosage: 500 MG, UNK
  4. TENOX                              /00393701/ [Concomitant]
     Dosage: 10 MG, PRN
  5. EMCONCOR [Concomitant]
     Dosage: 2.5 MG, DAILY
  6. PROSCAR [Concomitant]
     Dosage: 5 MG, DAILY
  7. ATRODUAL [Concomitant]
     Dosage: 2.5 ML, UNK
  8. FURESIS [Concomitant]
     Dosage: 100 MG (60+40), DAILY
  9. MORPHINE SULFATE [Concomitant]
     Dosage: 3 MG, PRN
  10. LAXOBERON [Concomitant]
     Dosage: 10 GTT, DAILY
  11. KLEXANE [Concomitant]
     Dosage: 40 MG, DAILY
     Route: 058
  12. PRIMPERAN TAB [Concomitant]
     Dosage: UNK, PRN
  13. BUPRENORPHINE HCL [Suspect]
     Indication: MUSCULOSKELETAL PAIN
     Dosage: 10 MCG, Q1H
     Route: 062
     Dates: start: 20101202, end: 20110329
  14. SOMAC [Concomitant]
     Dosage: 40 MG, DAILY

REACTIONS (2)
  - BLOOD ALKALINE PHOSPHATASE INCREASED [None]
  - FAECES DISCOLOURED [None]
